FAERS Safety Report 7808521-6 (Version None)
Quarter: 2011Q4

REPORT INFORMATION
  Report Type: 
  Country: None (occurrence: None)
  Receive Date: 20111012
  Receipt Date: 20111004
  Transmission Date: 20120403
  Serious: Yes (Other)
  Sender: FDA-Public Use
  Company Number: JP-JNJFOC-20111000805

PATIENT
  Age: 44 Year
  Sex: Male

DRUGS (7)
  1. TRAMADOL HYDROCHLORIDE/ACETAMINOPHEN [Suspect]
     Indication: PAIN
     Dosage: 1 PER 1 DAY
     Route: 048
     Dates: start: 20110910, end: 20110914
  2. TRAMADOL HYDROCHLORIDE/ACETAMINOPHEN [Suspect]
     Dosage: 1 PER 1 DAY
     Route: 048
     Dates: start: 20110915, end: 20110922
  3. CANDESARTAN CILEXETIL [Concomitant]
     Route: 048
  4. AMLODIPINE [Concomitant]
     Route: 048
  5. NORVASC [Concomitant]
     Route: 048
  6. OMEPRAZOLE [Concomitant]
     Route: 065
  7. TENORMIN [Concomitant]
     Route: 048

REACTIONS (1)
  - DRUG ERUPTION [None]
